FAERS Safety Report 4429979-9 (Version None)
Quarter: 2004Q3

REPORT INFORMATION
  Report Type: 
  Country: None (occurrence: None)
  Receive Date: 20040818
  Receipt Date: 20040803
  Transmission Date: 20050211
  Serious: Yes (Other)
  Sender: FDA-Public Use
  Company Number: 2004S1001415

PATIENT
  Age: 30 Year
  Sex: Female

DRUGS (2)
  1. METOPROLOL TARTRATE [Suspect]
     Dosage: 100MG, QD, ORAL
     Route: 048
     Dates: start: 20040205, end: 20040211
  2. MEDROXYPROGESTERONE [Concomitant]

REACTIONS (6)
  - ASTHENIA [None]
  - CONDITION AGGRAVATED [None]
  - DEPRESSION [None]
  - DYSPNOEA [None]
  - MEDICATION ERROR [None]
  - NAUSEA [None]
